FAERS Safety Report 5908892-1 (Version None)
Quarter: 2008Q4

REPORT INFORMATION
  Report Type: 
  Country: None (occurrence: None)
  Receive Date: 20081006
  Receipt Date: 20080930
  Transmission Date: 20090506
  Serious: Yes (Other)
  Sender: FDA-Public Use
  Company Number: BE-AVENTIS-200815259EU

PATIENT
  Age: 72 Year
  Sex: Female

DRUGS (20)
  1. ENOXAPARIN SODIUM [Suspect]
     Indication: THROMBOSIS PROPHYLAXIS
     Route: 058
     Dates: start: 20080813, end: 20080904
  2. ENOXAPARIN SODIUM [Suspect]
     Route: 058
     Dates: start: 20080907, end: 20080909
  3. ASAFLOW [Concomitant]
     Indication: CAROTID ARTERY STENOSIS
     Route: 048
  4. FLUDEX                             /00340101/ [Concomitant]
     Indication: HYPERTENSION
     Route: 048
  5. SELOKEN                            /00376902/ [Concomitant]
     Indication: HYPERTENSION
     Route: 048
  6. TRITACE [Concomitant]
     Indication: HYPERTENSION
     Route: 048
  7. TRIAZOLAM [Concomitant]
     Indication: INSOMNIA
     Route: 048
  8. TRAMADOL HCL [Concomitant]
     Indication: OESOPHAGEAL STENOSIS
     Route: 048
  9. EMEND [Concomitant]
     Route: 048
  10. EMEND [Concomitant]
     Indication: CHEMOTHERAPY
     Route: 048
  11. CISPLATIN [Concomitant]
     Indication: OESOPHAGEAL NEOPLASM
     Route: 042
     Dates: start: 20080825, end: 20080829
  12. ZOFRAN [Concomitant]
     Indication: NEOPLASM
     Route: 042
  13. ZOFRAN [Concomitant]
     Indication: CHEMOTHERAPY
     Route: 042
  14. AACIDEXAM [Concomitant]
     Indication: OESOPHAGEAL NEOPLASM
     Route: 042
     Dates: start: 20080825, end: 20080831
  15. AACIDEXAM [Concomitant]
     Indication: CHEMOTHERAPY
     Route: 042
     Dates: start: 20080825, end: 20080831
  16. DIFLUCAN [Concomitant]
     Indication: ERYTHEMA
     Dates: start: 20080904
  17. DIFLUCAN [Concomitant]
     Indication: VAGINAL ERYTHEMA
     Dates: start: 20080904
  18. FLUOROURACIL [Concomitant]
     Indication: OESOPHAGEAL NEOPLASM
     Route: 042
     Dates: start: 20080825, end: 20080829
  19. ACETAMINOPHEN [Concomitant]
     Dates: start: 20080905
  20. AMIODARONE [Concomitant]
     Dates: start: 20080905

REACTIONS (16)
  - AGRANULOCYTOSIS [None]
  - ATRIAL FIBRILLATION [None]
  - BLOOD BILIRUBIN INCREASED [None]
  - BRADYCARDIA [None]
  - CARDIAC FAILURE [None]
  - DIARRHOEA [None]
  - HYPERTENSION [None]
  - HYPOKALAEMIA [None]
  - MULTI-ORGAN FAILURE [None]
  - PULMONARY EMBOLISM [None]
  - PULMONARY HYPERTENSION [None]
  - RENAL FAILURE [None]
  - RESPIRATORY ARREST [None]
  - SEPTIC SHOCK [None]
  - THROMBOCYTOPENIA [None]
  - TRANSAMINASES INCREASED [None]
